FAERS Safety Report 4447770-4 (Version None)
Quarter: 2004Q3

REPORT INFORMATION
  Report Type: 
  Country: None (occurrence: None)
  Receive Date: 20040913
  Receipt Date: 20040903
  Transmission Date: 20050211
  Serious: Yes (Hospitalization)
  Sender: FDA-Public Use
  Company Number: 200418789GDDC

PATIENT
  Age: 23 Year
  Sex: Female

DRUGS (2)
  1. LANTUS [Suspect]
     Indication: DIABETES MELLITUS INSULIN-DEPENDENT
     Dosage: DOSE UNIT: UNITS
     Route: 058
     Dates: start: 20040816, end: 20040819
  2. NPH INSULIN [Concomitant]
     Dosage: DOSE UNIT: UNITS
     Route: 058

REACTIONS (10)
  - ARTHRALGIA [None]
  - BLOOD GLUCOSE INCREASED [None]
  - FEELING HOT [None]
  - INJECTION SITE WARMTH [None]
  - MYALGIA [None]
  - OEDEMA [None]
  - REFUSAL OF TREATMENT BY PATIENT [None]
  - STOOLS WATERY [None]
  - THERAPY NON-RESPONDER [None]
  - URINARY TRACT INFECTION [None]
